FAERS Safety Report 4365562-1 (Version None)
Quarter: 2004Q2

REPORT INFORMATION
  Report Type: 
  Country: None (occurrence: None)
  Receive Date: 20040526
  Receipt Date: 20040521
  Transmission Date: 20050107
  Serious: Yes (Other)
  Sender: FDA-Public Use
  Company Number: BR-BRISTOL-MYERS SQUIBB COMPANY-12593703

PATIENT
  Age: 82 Year
  Sex: Female
  Weight: 58 kg

DRUGS (4)
  1. TEQUIN [Suspect]
     Indication: LUNG ABSCESS
     Route: 048
     Dates: start: 20040401, end: 20040428
  2. ENALAPRIL [Concomitant]
  3. HYDROCHLOROTHIAZIDE [Concomitant]
  4. OMEPRAZOLE [Concomitant]

REACTIONS (2)
  - HYPERGLYCAEMIA [None]
  - VAGINAL CANDIDIASIS [None]
